FAERS Safety Report 7690129-7 (Version None)
Quarter: 2011Q3

REPORT INFORMATION
  Report Type: 
  Country: None (occurrence: None)
  Receive Date: 20110818
  Receipt Date: 20110111
  Transmission Date: 20111222
  Serious: No
  Sender: FDA-Public Use
  Company Number: US-BAYER-2011-003808

PATIENT
  Age: 30 Year
  Sex: Female

DRUGS (1)
  1. MIRENA [Suspect]
     Indication: CONTRACEPTION
     Dosage: 20 MCG/24HR, CONT
     Route: 015
     Dates: start: 20100513, end: 20110110

REACTIONS (11)
  - ANGER [None]
  - MOOD ALTERED [None]
  - STRESS [None]
  - EMOTIONAL DISORDER [None]
  - IRRITABILITY [None]
  - MIGRAINE [None]
  - DEPRESSED MOOD [None]
  - AFFECT LABILITY [None]
  - DEPRESSION [None]
  - ANHEDONIA [None]
  - MOOD SWINGS [None]
